FAERS Safety Report 16753466 (Version 1)
Quarter: 2019Q3

REPORT INFORMATION
  Report Type: Spontaneous
  Country: GB (occurrence: GB)
  Receive Date: 20190829
  Receipt Date: 20190829
  Transmission Date: 20191005
  Serious: Yes (Other)
  Sender: FDA-Public Use
  Company Number: GB-ROCHE-2386585

PATIENT
  Age: 87 Year
  Sex: Male

DRUGS (1)
  1. ACTILYSE [Suspect]
     Active Substance: ALTEPLASE
     Indication: RETINAL HAEMORRHAGE
     Route: 031

REACTIONS (7)
  - Optic disc disorder [Unknown]
  - Corneal oedema [Recovering/Resolving]
  - Hyphaema [Recovering/Resolving]
  - Off label use [Unknown]
  - Vitreous haemorrhage [Recovering/Resolving]
  - Intraocular pressure decreased [Recovering/Resolving]
  - Retinopathy [Unknown]

NARRATIVE: CASE EVENT DATE: 20180629
